FAERS Safety Report 14727641 (Version 2)
Quarter: 2018Q2

REPORT INFORMATION
  Report Type: Spontaneous
  Country: IT (occurrence: IT)
  Receive Date: 20180406
  Receipt Date: 20180412
  Transmission Date: 20180711
  Serious: Yes (Hospitalization)
  Sender: FDA-Public Use
  Company Number: IT-TEVA-2018-IT-876241

PATIENT
  Age: 70 Year
  Sex: Male

DRUGS (5)
  1. IRINOTECAN ACCORD [Concomitant]
     Active Substance: IRINOTECAN
  2. FLUOROURACIL. [Suspect]
     Active Substance: FLUOROURACIL
     Indication: COLON CANCER
     Route: 042
  3. AVASTIN [Concomitant]
     Active Substance: BEVACIZUMAB
     Route: 042
  4. ONDANSETRON HYDROCHLORIDE. [Concomitant]
     Active Substance: ONDANSETRON HYDROCHLORIDE
  5. DESAMETASONE [Concomitant]
     Active Substance: DEXAMETHASONE

REACTIONS (6)
  - Erythema [Unknown]
  - Insomnia [Unknown]
  - Lacrimation increased [Unknown]
  - Oedema [Unknown]
  - Tachycardia [Unknown]
  - Agitation [Unknown]

NARRATIVE: CASE EVENT DATE: 20180101
